FAERS Safety Report 4500369-3 (Version None)
Quarter: 2004Q4

REPORT INFORMATION
  Report Type: 
  Country: None (occurrence: None)
  Receive Date: 20041112
  Receipt Date: 20041104
  Transmission Date: 20050328
  Serious: Yes (Hospitalization, Other)
  Sender: FDA-Public Use
  Company Number: US-MERCK-0411USA00728

PATIENT
  Age: 61 Year
  Sex: Female

DRUGS (5)
  1. VIOXX [Suspect]
     Indication: ARTHRITIS
     Route: 048
     Dates: start: 19990101, end: 20040930
  2. PREMARIN [Concomitant]
     Route: 065
  3. SPIRONOLACTONE [Concomitant]
     Route: 065
  4. PREVACID [Concomitant]
     Route: 065
  5. FLONASE [Concomitant]
     Route: 065

REACTIONS (7)
  - BALANCE DISORDER [None]
  - FATIGUE [None]
  - HYPERTENSION [None]
  - NAUSEA [None]
  - TRANSIENT ISCHAEMIC ATTACK [None]
  - VERTIGO [None]
  - VISUAL DISTURBANCE [None]
